FAERS Safety Report 21200595 (Version 1)
Quarter: 2022Q3

REPORT INFORMATION
  Report Type: Spontaneous
  Country: US (occurrence: None)
  Receive Date: 20220810
  Receipt Date: 20220810
  Transmission Date: 20221027
  Serious: Yes (Other)
  Sender: FDA-Public Use
  Company Number: None

PATIENT
  Sex: Male

DRUGS (6)
  1. HUMIRA [Suspect]
     Active Substance: ADALIMUMAB
     Indication: Rheumatoid arthritis
     Dosage: 40 MG/0.4ML SUBCUTANEOUS?INJECT ONE PEN (40 MG) UNDER THE SKIN (SUBCUTANEOUS INJECTION) EVERY TWO WE
     Route: 058
     Dates: start: 20200527
  2. CALCIFEROL DRO [Concomitant]
  3. FOLIC ACID [Concomitant]
     Active Substance: FOLIC ACID
  4. LISINOPRIL [Concomitant]
  5. MULTIVITAMIN CAP [Concomitant]
  6. ZYRTEC ALLGY CAP [Concomitant]

REACTIONS (1)
  - Surgery [None]
